FAERS Safety Report 21035239 (Version 1)
Quarter: 2022Q3

REPORT INFORMATION
  Report Type: Spontaneous
  Country: US (occurrence: US)
  Receive Date: 20220701
  Receipt Date: 20220701
  Transmission Date: 20221026
  Serious: No
  Sender: FDA-Public Use
  Company Number: US-BRISTOL-MYERS SQUIBB COMPANY-2022-067521

PATIENT
  Age: 92 Year
  Sex: Female
  Weight: 73.935 kg

DRUGS (1)
  1. REVLIMID [Suspect]
     Active Substance: LENALIDOMIDE
     Indication: Plasma cell myeloma
     Dosage: FREQUENCY- 3 WEEKS ON 1 WEEK OFF.
     Route: 048

REACTIONS (1)
  - Adverse event [Unknown]
